FAERS Safety Report 4462495-7 (Version None)
Quarter: 2004Q3

REPORT INFORMATION
  Report Type: 
  Country: None (occurrence: None)
  Receive Date: 20040929
  Receipt Date: 20030130
  Transmission Date: 20050211
  Serious: Yes (Hospitalization, Disabling, Other)
  Sender: FDA-Public Use
  Company Number: US-MERCK-0302USA00112

PATIENT
  Age: 46 Year
  Sex: Female
  Weight: 114 kg

DRUGS (15)
  1. ACETAMINOPHEN AND CODEINE PHOSPHATE [Concomitant]
     Route: 065
     Dates: start: 20000225
  2. ACETAMINOPHEN AND PROPOXYPHENE NAPSYLATE [Concomitant]
     Route: 048
     Dates: start: 19991104
  3. CARISOPRODOL [Concomitant]
     Route: 048
     Dates: start: 20000301
  4. VOLTAREN [Suspect]
     Indication: ARTHRALGIA
     Route: 065
  5. PREMPRO [Concomitant]
     Indication: HORMONE REPLACEMENT THERAPY
     Route: 065
     Dates: start: 19950101, end: 20021201
  6. VIOXX [Suspect]
     Indication: OSTEOARTHRITIS
     Route: 048
     Dates: start: 19990101
  7. VIOXX [Suspect]
     Route: 048
     Dates: start: 19991104
  8. VIOXX [Suspect]
     Route: 048
     Dates: end: 20000101
  9. VIOXX [Suspect]
     Route: 048
     Dates: start: 19991203, end: 20000301
  10. VIOXX [Suspect]
     Route: 048
     Dates: start: 20000417, end: 20000101
  11. VIOXX [Suspect]
     Indication: MONARTHRITIS
     Route: 048
     Dates: start: 19990101
  12. VIOXX [Suspect]
     Route: 048
     Dates: start: 19991104
  13. VIOXX [Suspect]
     Route: 048
     Dates: end: 20000101
  14. VIOXX [Suspect]
     Route: 048
     Dates: start: 19991203, end: 20000301
  15. VIOXX [Suspect]
     Route: 048
     Dates: start: 20000417, end: 20000101

REACTIONS (29)
  - ANAEMIA [None]
  - ANGINA PECTORIS [None]
  - AORTIC VALVE INCOMPETENCE [None]
  - ARTHRITIS [None]
  - ARTHROPATHY [None]
  - CANDIDIASIS [None]
  - CHRONIC LYMPHOCYTIC LEUKAEMIA [None]
  - CORONARY ARTERY DISEASE [None]
  - GASTRITIS [None]
  - GASTROINTESTINAL HAEMORRHAGE [None]
  - HEART RATE IRREGULAR [None]
  - HYPERLIPIDAEMIA [None]
  - HYPERTENSION [None]
  - LOCALISED OSTEOARTHRITIS [None]
  - MENISCUS LESION [None]
  - MITRAL VALVE PROLAPSE [None]
  - MYOCARDIAL INFARCTION [None]
  - OEDEMA PERIPHERAL [None]
  - OVERDOSE [None]
  - PEPTIC ULCER [None]
  - PNEUMONIA [None]
  - REFLUX OESOPHAGITIS [None]
  - STRESS SYMPTOMS [None]
  - TRICUSPID VALVE INCOMPETENCE [None]
  - ULCER HAEMORRHAGE [None]
  - URINARY TRACT INFECTION [None]
  - VENTRICULAR DYSFUNCTION [None]
  - VOMITING [None]
  - WOUND INFECTION STAPHYLOCOCCAL [None]
